FAERS Safety Report 16921125 (Version 1)
Quarter: 2019Q4

REPORT INFORMATION
  Report Type: Spontaneous
  Country: IT (occurrence: IT)
  Receive Date: 20191015
  Receipt Date: 20191015
  Transmission Date: 20200122
  Serious: Yes (Other)
  Sender: FDA-Public Use
  Company Number: IT-VIIV HEALTHCARE LIMITED-IT2019GSK182853

PATIENT
  Age: 54 Year
  Sex: Male

DRUGS (4)
  1. RITONAVIR. [Suspect]
     Active Substance: RITONAVIR
     Indication: ACQUIRED IMMUNODEFICIENCY SYNDROME
     Dosage: 100 MG, BID
  2. EMTRICITABINE/TENOFOVIR DISOPROXIL FUMARATE [Suspect]
     Active Substance: EMTRICITABINE\TENOFOVIR DISOPROXIL FUMARATE
     Dosage: UNK, BID
  3. EMTRICITABINE/TENOFOVIR DISOPROXIL FUMARATE [Suspect]
     Active Substance: EMTRICITABINE\TENOFOVIR DISOPROXIL FUMARATE
     Indication: ACQUIRED IMMUNODEFICIENCY SYNDROME
     Dosage: UNK, QD
  4. FOSAMPRENAVIR [Suspect]
     Active Substance: FOSAMPRENAVIR
     Indication: ACQUIRED IMMUNODEFICIENCY SYNDROME
     Dosage: 700 MG, BID

REACTIONS (18)
  - Blood HIV RNA increased [Recovered/Resolved]
  - Cough [Recovered/Resolved]
  - Tachypnoea [Recovered/Resolved]
  - Tachycardia [Recovered/Resolved]
  - Lung opacity [Recovered/Resolved]
  - Forced expiratory volume decreased [Recovered/Resolved]
  - Dyspnoea [Recovered/Resolved]
  - Obstructive airways disorder [Recovered/Resolved]
  - FEV1/FVC ratio decreased [Recovered/Resolved]
  - Respiratory fremitus [Recovered/Resolved]
  - Forced vital capacity decreased [Recovered/Resolved]
  - Condition aggravated [Recovered/Resolved]
  - Hypersensitivity pneumonitis [Recovered/Resolved]
  - Leukocytosis [Recovered/Resolved]
  - Rales [Recovered/Resolved]
  - Lung diffusion test decreased [Recovered/Resolved]
  - Forced expiratory flow decreased [Recovered/Resolved]
  - Poor peripheral circulation [Recovered/Resolved]

NARRATIVE: CASE EVENT DATE: 201211
